FAERS Safety Report 9056323 (Version 3)
Quarter: 2013Q3

REPORT INFORMATION
  Report Type: Report from Study
  Country: BR (occurrence: BR)
  Receive Date: 20130204
  Receipt Date: 20130820
  Transmission Date: 20140515
  Serious: Yes (Hospitalization)
  Sender: FDA-Public Use
  Company Number: BR-ROCHE-1186941

PATIENT
  Sex: Female
  Weight: 85 kg

DRUGS (4)
  1. MABTHERA [Suspect]
     Indication: SYSTEMIC LUPUS ERYTHEMATOSUS
     Route: 065
     Dates: start: 20120401
  2. MABTHERA [Suspect]
     Route: 065
     Dates: start: 20120415
  3. PLAQUENIL [Concomitant]
  4. CLEXANE [Concomitant]

REACTIONS (4)
  - Thrombosis [Not Recovered/Not Resolved]
  - Thrombosis [Recovered/Resolved]
  - Thrombosis [Recovered/Resolved]
  - Pulmonary thrombosis [Recovered/Resolved]
